FAERS Safety Report 14563261 (Version 1)
Quarter: 2018Q1

REPORT INFORMATION
  Report Type: Spontaneous
  Country: JP (occurrence: JP)
  Receive Date: 20180222
  Receipt Date: 20180222
  Transmission Date: 20180509
  Serious: Yes (Other)
  Sender: FDA-Public Use
  Company Number: JP-GLAXOSMITHKLINE-JP2018JPN027383

PATIENT
  Age: 26 Year
  Sex: Male

DRUGS (1)
  1. FLUTIDE [Suspect]
     Active Substance: FLUTICASONE PROPIONATE
     Dosage: UNK
     Route: 055

REACTIONS (4)
  - Urticaria [Unknown]
  - Generalised erythema [Unknown]
  - Dyspnoea [Unknown]
  - Anaphylactic reaction [Unknown]
